FAERS Safety Report 9886272 (Version 2)
Quarter: 2014Q1

REPORT INFORMATION
  Report Type: Spontaneous
  Country: US (occurrence: US)
  Receive Date: 20140210
  Receipt Date: 20140305
  Transmission Date: 20141002
  Serious: Yes (Hospitalization)
  Sender: FDA-Public Use
  Company Number: US-ASTRAZENECA-2014SE06847

PATIENT
  Age: 89 Day
  Sex: Female

DRUGS (3)
  1. SYNAGIS [Suspect]
     Dosage: 50 MG/ 0.5 ML VIAL (LIQUID)
     Route: 030
  2. SYNAGIS [Suspect]
     Dosage: DECEMBER, JANUARY AND FEBRUARY
     Route: 030
  3. POLYVITAMIN DRO/ IRON [Concomitant]

REACTIONS (3)
  - Infection [Unknown]
  - Nasal congestion [Unknown]
  - Nasopharyngitis [Unknown]
